FAERS Safety Report 20205894 (Version 1)
Quarter: 2021Q4

REPORT INFORMATION
  Report Type: Spontaneous
  Country: BR (occurrence: BR)
  Receive Date: 20211220
  Receipt Date: 20211220
  Transmission Date: 20220303
  Serious: Yes (Other)
  Sender: FDA-Public Use
  Company Number: BR-LUPIN PHARMACEUTICALS INC.-2021-25005

PATIENT
  Sex: Male

DRUGS (6)
  1. CARBIDOPA [Suspect]
     Active Substance: CARBIDOPA
     Indication: Nervous system disorder prophylaxis
     Dosage: 0.5 MILLIGRAM/KILOGRAM
     Route: 065
  2. L DOPA [Suspect]
     Active Substance: LEVODOPA
     Indication: Nervous system disorder prophylaxis
     Dosage: 2 MILLIGRAM/KILOGRAM
     Route: 065
  3. OXITRIPTAN [Suspect]
     Active Substance: OXITRIPTAN
     Indication: Nervous system disorder prophylaxis
     Dosage: 20 MILLIGRAM
     Route: 065
  4. OXITRIPTAN [Suspect]
     Active Substance: OXITRIPTAN
     Indication: Supplementation therapy
  5. LEUCOVORIN [Concomitant]
     Active Substance: LEUCOVORIN
     Indication: Supplementation therapy
     Dosage: 15 MILLIGRAM
     Route: 065
  6. SAPROPTERIN DIHYDROCHLORIDE [Concomitant]
     Active Substance: SAPROPTERIN DIHYDROCHLORIDE
     Indication: Neurodevelopmental disorder
     Dosage: 20 MILLIGRAM/KILOGRAM, QD
     Route: 065

REACTIONS (2)
  - Drug ineffective for unapproved indication [Unknown]
  - Off label use [Unknown]
